FAERS Safety Report 4694580-9 (Version None)
Quarter: 2005Q2

REPORT INFORMATION
  Report Type: 
  Country: None (occurrence: None)
  Receive Date: 20050620
  Receipt Date: 20050322
  Transmission Date: 20051028
  Serious: Yes (Hospitalization)
  Sender: FDA-Public Use
  Company Number: FR-SANOFI-SYNTHELABO-F01200500451

PATIENT
  Sex: Male
  Weight: 67 kg

DRUGS (7)
  1. OXALIPLATIN [Suspect]
     Indication: NON-SMALL CELL LUNG CANCER
     Route: 042
     Dates: start: 20041130, end: 20041130
  2. GEMCITABINE [Suspect]
     Indication: NON-SMALL CELL LUNG CANCER
     Dosage: 2300 MG ON DAY 1 AND DAY 8, Q3W
     Route: 042
     Dates: start: 20041207, end: 20041207
  3. VIVALAN [Concomitant]
     Indication: DEPRESSION
     Dosage: 1 UNIT
     Route: 048
     Dates: start: 19930101, end: 20041221
  4. LYSANXIA [Concomitant]
     Indication: DEPRESSION
     Dosage: 0.5 UNIT
     Route: 048
     Dates: start: 19930101, end: 20041221
  5. BEFIZAL [Concomitant]
     Indication: DYSLIPIDAEMIA
     Dosage: 1 UNIT
     Route: 048
     Dates: start: 19950101, end: 20041221
  6. PROFENID [Concomitant]
     Indication: BACK PAIN
     Route: 048
     Dates: start: 20041130, end: 20041207
  7. SOTALOL HCL [Concomitant]
     Indication: SUPRAVENTRICULAR TACHYCARDIA
     Route: 048
     Dates: start: 19930101, end: 20041221

REACTIONS (11)
  - ASCITES [None]
  - CHOLESTASIS [None]
  - HEPATIC ENCEPHALOPATHY [None]
  - HEPATIC FAILURE [None]
  - HEPATIC STEATOSIS [None]
  - JAUNDICE [None]
  - OEDEMA [None]
  - PELIOSIS HEPATIS [None]
  - PORTAL HYPERTENSION [None]
  - WEIGHT DECREASED [None]
  - WHITE BLOOD CELL COUNT INCREASED [None]
